FAERS Safety Report 22258716 (Version 1)
Quarter: 2023Q2

REPORT INFORMATION
  Report Type: Spontaneous
  Country: TR (occurrence: TR)
  Receive Date: 20230427
  Receipt Date: 20230427
  Transmission Date: 20230721
  Serious: Yes (Hospitalization, Other)
  Sender: FDA-Public Use
  Company Number: TR-BEH-2023157801

PATIENT
  Age: 12 Year
  Sex: Male

DRUGS (1)
  1. HIZENTRA [Suspect]
     Active Substance: HUMAN IMMUNOGLOBULIN G
     Dosage: 5 MILLIGRAM, QW
     Route: 058
     Dates: start: 2022

REACTIONS (6)
  - Thrombosis [Unknown]
  - Diarrhoea [Unknown]
  - Food poisoning [Unknown]
  - Infection [Unknown]
  - Vomiting [Unknown]
  - Nausea [Unknown]
